FAERS Safety Report 15108533 (Version 4)
Quarter: 2020Q1

REPORT INFORMATION
  Report Type: Report from Study
  Country: None (occurrence: CA)
  Receive Date: 20180705
  Receipt Date: 20200116
  Transmission Date: 20200409
  Serious: Yes (Hospitalization, Other)
  Sender: FDA-Public Use
  Company Number: CA-ABBVIE-18K-028-2359454-00

PATIENT
  Age: 47 Year
  Sex: Male

DRUGS (2)
  1. HUMIRA [Suspect]
     Active Substance: ADALIMUMAB
     Indication: CROHN^S DISEASE
     Route: 058
     Dates: start: 20180213, end: 20180522
  2. HUMIRA [Suspect]
     Active Substance: ADALIMUMAB
     Route: 058
     Dates: start: 20180802, end: 20191231

REACTIONS (10)
  - Intestinal stenosis [Recovered/Resolved]
  - Post procedural discharge [Not Recovered/Not Resolved]
  - Abdominal hernia [Unknown]
  - Intestinal obstruction [Recovered/Resolved]
  - Postoperative wound infection [Not Recovered/Not Resolved]
  - Gallbladder rupture [Unknown]
  - Hypoaesthesia [Not Recovered/Not Resolved]
  - Buttock injury [Not Recovered/Not Resolved]
  - Hepatic enzyme increased [Unknown]
  - Fall [Recovered/Resolved]

NARRATIVE: CASE EVENT DATE: 2018
